FAERS Safety Report 10328702 (Version 3)
Quarter: 2014Q3

REPORT INFORMATION
  Report Type: Spontaneous
  Country: BR (occurrence: BR)
  Receive Date: 20140721
  Receipt Date: 20140815
  Transmission Date: 20150326
  Serious: Yes (Other)
  Sender: FDA-Public Use
  Company Number: BR-PFIZER INC-2014197934

PATIENT
  Age: 65 Year
  Sex: Female
  Weight: 77 kg

DRUGS (5)
  1. MIOSAN [Concomitant]
     Active Substance: CYCLOBENZAPRINE
     Dosage: UNK
  2. TOPIRAMATE. [Concomitant]
     Active Substance: TOPIRAMATE
     Dosage: UNK
  3. ZOLOFT [Concomitant]
     Active Substance: SERTRALINE HYDROCHLORIDE
     Dosage: UNK
  4. RIVOTRIL [Concomitant]
     Active Substance: CLONAZEPAM
     Dosage: UNK
  5. LYRICA [Suspect]
     Active Substance: PREGABALIN
     Indication: INTERVERTEBRAL DISC PROTRUSION
     Dosage: 1 CAPSULE OF STRENGTH 75 MG, ALTERNATE DAYS
     Route: 048

REACTIONS (8)
  - Tremor [Not Recovered/Not Resolved]
  - Drug ineffective [Unknown]
  - Feeling drunk [Not Recovered/Not Resolved]
  - Palpitations [Not Recovered/Not Resolved]
  - Labyrinthitis [Not Recovered/Not Resolved]
  - Disease progression [Not Recovered/Not Resolved]
  - Somnolence [Not Recovered/Not Resolved]
  - Feeling abnormal [Unknown]
